FAERS Safety Report 10556754 (Version 1)
Quarter: 2014Q4

REPORT INFORMATION
  Report Type: Spontaneous
  Country: US (occurrence: US)
  Receive Date: 20141031
  Receipt Date: 20141031
  Transmission Date: 20150529
  Serious: Yes (Other)
  Sender: FDA-Public Use
  Company Number: CHPA2014US014525

PATIENT
  Age: 72 Year
  Sex: Female

DRUGS (2)
  1. NODOZ [Suspect]
     Active Substance: CAFFEINE
     Indication: FATIGUE
     Dosage: 1 DF, BID
     Route: 048
  2. NODOZ [Suspect]
     Active Substance: CAFFEINE
     Dosage: 1 DF, BID
     Route: 065
     Dates: start: 20141024

REACTIONS (1)
  - Drug abuse [Unknown]
